FAERS Safety Report 23429848 (Version 3)
Quarter: 2024Q2

REPORT INFORMATION
  Report Type: Spontaneous
  Country: JP (occurrence: JP)
  Receive Date: 20240122
  Receipt Date: 20240509
  Transmission Date: 20240716
  Serious: Yes (Hospitalization, Other)
  Sender: FDA-Public Use
  Company Number: JP-ONO-2023JP021278

PATIENT
  Age: 61 Year
  Sex: Male
  Weight: 71.1 kg

DRUGS (19)
  1. EMEND [Suspect]
     Active Substance: APREPITANT
     Indication: Prophylaxis of nausea and vomiting
     Dosage: 120 MG, 80 MG
     Route: 048
     Dates: start: 20220209
  2. OPDIVO [Suspect]
     Active Substance: NIVOLUMAB
     Indication: Gastric cancer
     Dosage: 360 MG
     Route: 041
     Dates: start: 20220119, end: 20220712
  3. GIMERACIL\OTERACIL\TEGAFUR [Suspect]
     Active Substance: GIMERACIL\OTERACIL POTASSIUM\TEGAFUR
     Indication: Gastric cancer
     Dosage: 60 MG, Q12H
     Route: 048
     Dates: start: 20220119, end: 20220712
  4. OXALIPLATIN [Suspect]
     Active Substance: OXALIPLATIN
     Indication: Gastric cancer
     Dosage: 150 MG
     Route: 041
     Dates: start: 20220119, end: 20220531
  5. VONOPRAZAN FUMARATE [Suspect]
     Active Substance: VONOPRAZAN FUMARATE
     Dosage: 20 MG, EVERYDAY
     Route: 048
     Dates: start: 20220121
  6. LOXOPROFEN [Suspect]
     Active Substance: LOXOPROFEN
     Dosage: 60 MG, Q12H
     Route: 048
     Dates: start: 20220209, end: 20230822
  7. CYRAMZA [Suspect]
     Active Substance: RAMUCIRUMAB
     Indication: Gastric cancer
     Dosage: 550 MG
     Route: 065
     Dates: start: 20220720
  8. CYRAMZA [Suspect]
     Active Substance: RAMUCIRUMAB
     Dosage: 550 MG
     Route: 065
     Dates: end: 20230615
  9. PACLITAXEL [Suspect]
     Active Substance: PACLITAXEL
     Indication: Gastric cancer
     Dosage: 140 MG
     Route: 065
     Dates: start: 20220720
  10. PACLITAXEL [Suspect]
     Active Substance: PACLITAXEL
     Dosage: 140 MG
     Route: 065
     Dates: end: 20230615
  11. METFORMIN HYDROCHLORIDE [Concomitant]
     Active Substance: METFORMIN HYDROCHLORIDE
     Dosage: 250 MG, Q12H
     Route: 048
     Dates: end: 20231003
  12. ROSUVASTATIN [Concomitant]
     Active Substance: ROSUVASTATIN
     Dosage: 2.5 MG, EVERYDAY
     Route: 048
     Dates: end: 20231121
  13. AMLODIPINE [Concomitant]
     Active Substance: AMLODIPINE BESYLATE
     Dosage: 2.5 MG, EVERYDAY
     Route: 048
     Dates: end: 20231003
  14. PREGABALIN [Concomitant]
     Active Substance: PREGABALIN
     Indication: Prophylaxis
     Dosage: 75 MG, Q12H
     Route: 048
     Dates: start: 20220413
  15. METOCLOPRAMIDE [Concomitant]
     Active Substance: METOCLOPRAMIDE
     Indication: Prophylaxis
     Dosage: 5 MG, Q8H
     Route: 048
     Dates: start: 20220121
  16. DECADRON [Concomitant]
     Active Substance: DEXAMETHASONE
     Indication: Prophylaxis
     Dosage: 4 MG, EVERYDAY
     Route: 048
     Dates: start: 20220119
  17. SILODOSIN [Concomitant]
     Active Substance: SILODOSIN
     Dosage: 4 MG, Q12H
     Route: 048
  18. EVIPROSTAT [CHIMAPHILA UMBELLATA EXTRACT;EQUISETUM ARVENSE EXTRACT;POP [Concomitant]
     Dosage: 1 DF, Q12H
     Route: 048
  19. DUTASTERIDE [Concomitant]
     Active Substance: DUTASTERIDE
     Dosage: 0.5 MG, EVERYDAY
     Route: 048

REACTIONS (3)
  - Colitis microscopic [Recovering/Resolving]
  - Colitis microscopic [Recovering/Resolving]
  - Underdose [Unknown]

NARRATIVE: CASE EVENT DATE: 20220209
